FAERS Safety Report 21762265 (Version 4)
Quarter: 2023Q1

REPORT INFORMATION
  Report Type: Report from Study
  Country: CO (occurrence: CO)
  Receive Date: 20221221
  Receipt Date: 20230216
  Transmission Date: 20230417
  Serious: Yes (Other)
  Sender: FDA-Public Use
  Company Number: CO-JNJFOC-20221228276

PATIENT
  Age: 50 Year
  Sex: Female
  Weight: 65 kg

DRUGS (13)
  1. SIMPONI [Suspect]
     Active Substance: GOLIMUMAB
     Indication: Rheumatoid arthritis
     Dosage: LAST DATE OF APPLICATION 03-JAN-2023
     Route: 058
     Dates: start: 20220331
  2. ETORICOXIB [Suspect]
     Active Substance: ETORICOXIB
  3. HYDROCORTISONE [Concomitant]
     Active Substance: HYDROCORTISONE
  4. LORATADINE [Concomitant]
     Active Substance: LORATADINE
  5. PILOCARPINE [Concomitant]
     Active Substance: PILOCARPINE
  6. METHYLPREDNISOLONE [Concomitant]
     Active Substance: METHYLPREDNISOLONE
  7. FOLIC ACID [Concomitant]
     Active Substance: FOLIC ACID
  8. CALCIUM\CHOLECALCIFEROL [Concomitant]
     Active Substance: CALCIUM\CHOLECALCIFEROL
  9. METHOTREXATE [Concomitant]
     Active Substance: METHOTREXATE
  10. PREGABALIN [Concomitant]
     Active Substance: PREGABALIN
  11. DOLEX FORTE [Concomitant]
     Active Substance: ACETAMINOPHEN\ASPIRIN\CAFFEINE
  12. VENLAFAXINE [Concomitant]
     Active Substance: VENLAFAXINE HYDROCHLORIDE
  13. QUETIAPINE [Concomitant]
     Active Substance: QUETIAPINE

REACTIONS (6)
  - Psoriatic arthropathy [Unknown]
  - Pain in extremity [Not Recovered/Not Resolved]
  - Influenza [Not Recovered/Not Resolved]
  - Hypersensitivity [Unknown]
  - Back pain [Not Recovered/Not Resolved]
  - Psoriasis [Not Recovered/Not Resolved]

NARRATIVE: CASE EVENT DATE: 20220801
